FAERS Safety Report 6893721-2 (Version None)
Quarter: 2010Q3

REPORT INFORMATION
  Report Type: 
  Country: None (occurrence: None)
  Receive Date: 20100801
  Receipt Date: 20100728
  Transmission Date: 20110219
  Serious: Yes (Other)
  Sender: FDA-Public Use
  Company Number: US-BRISTOL-MYERS SQUIBB COMPANY-15215015

PATIENT
  Sex: Female

DRUGS (3)
  1. QUESTRAN [Suspect]
  2. LIPITOR [Suspect]
     Dosage: FILM COATED DAYS
  3. ZOCOR [Suspect]

REACTIONS (3)
  - BLOOD TRIGLYCERIDES INCREASED [None]
  - HEPATIC ENZYME INCREASED [None]
  - MYALGIA [None]
